FAERS Safety Report 9927861 (Version 3)
Quarter: 2014Q1

REPORT INFORMATION
  Report Type: Spontaneous
  Country: JP (occurrence: JP)
  Receive Date: 20140227
  Receipt Date: 20140321
  Transmission Date: 20141002
  Serious: Yes (Death)
  Sender: FDA-Public Use
  Company Number: JP-ROCHE-1354854

PATIENT
  Age: 51 Year
  Sex: Male
  Weight: 32 kg

DRUGS (7)
  1. TAMIFLU [Suspect]
     Indication: INFLUENZA
     Dosage: DOSAGE IS UNCERTAIN.
     Route: 050
     Dates: start: 20140216, end: 20140219
  2. MAGMITT [Concomitant]
     Indication: FUNCTIONAL GASTROINTESTINAL DISORDER
     Route: 050
  3. GASMOTIN [Concomitant]
     Indication: FUNCTIONAL GASTROINTESTINAL DISORDER
     Route: 050
  4. LIORESAL [Concomitant]
     Indication: CEREBRAL PALSY
     Route: 050
  5. DEPAKENE [Concomitant]
     Indication: EPILEPSY
     Route: 050
     Dates: start: 20091119
  6. CLARITHROMYCIN [Concomitant]
     Indication: BRONCHITIS CHRONIC
     Dosage: MORNING
     Route: 050
  7. LANSOPRAZOLE [Concomitant]
     Indication: FUNCTIONAL GASTROINTESTINAL DISORDER
     Dosage: DAYTIME
     Route: 050
     Dates: end: 20140221

REACTIONS (2)
  - Enterocolitis haemorrhagic [Fatal]
  - Multi-organ failure [Fatal]
